FAERS Safety Report 8903738 (Version 2)
Quarter: 2012Q4

REPORT INFORMATION
  Report Type: 
  Country: US (occurrence: US)
  Receive Date: 20121112
  Receipt Date: 20121218
  Transmission Date: 20130627
  Serious: No
  Sender: FDA-Public Use
  Company Number: US-PFIZER INC-2012278628

PATIENT
  Age: 63 Year
  Sex: Female
  Weight: 100 kg

DRUGS (4)
  1. CHANTIX [Suspect]
     Indication: SMOKING CESSATION THERAPY
     Dosage: 0.5 mg, 1x/day
     Dates: start: 20121009, end: 201210
  2. CHANTIX [Suspect]
     Dosage: 1 mg, 2x/day
     Dates: start: 201210
  3. METOPROLOL TARTRATE [Concomitant]
     Indication: BLOOD PRESSURE HIGH
     Dosage: 50 mg in morning and 100 mg at night, 2x/day
  4. SIMVASTATIN [Concomitant]
     Indication: HIGH CHOLESTEROL
     Dosage: 90 mg, 1x/day

REACTIONS (1)
  - Hearing impaired [Not Recovered/Not Resolved]
